FAERS Safety Report 6578788-3 (Version None)
Quarter: 2010Q1

REPORT INFORMATION
  Report Type: 
  Country: None (occurrence: None)
  Receive Date: 20100202
  Receipt Date: 20100118
  Transmission Date: 20100710
  Serious: Yes (Other)
  Sender: FDA-Public Use
  Company Number: AUR-APL-2010-00286

PATIENT
  Age: 33 Year
  Sex: Male

DRUGS (1)
  1. PAROXETINE HCL [Suspect]
     Indication: DEPRESSIVE SYMPTOM
     Dosage: 40MG, DAILY

REACTIONS (1)
  - SPERMATORRHOEA [None]
